FAERS Safety Report 9521390 (Version 1)
Quarter: 2013Q3

REPORT INFORMATION
  Report Type: Spontaneous
  Country: CA (occurrence: CA)
  Receive Date: 20130913
  Receipt Date: 20130913
  Transmission Date: 20140515
  Serious: Yes (Other)
  Sender: FDA-Public Use
  Company Number: CA-ASTRAZENECA-2013SE67881

PATIENT
  Age: 56 Year
  Sex: Female

DRUGS (6)
  1. ARIMIDEX [Suspect]
     Route: 048
  2. XELODA [Suspect]
     Route: 048
  3. TAMOXIFEN [Suspect]
     Route: 048
  4. METHOTREXATE [Suspect]
     Route: 065
  5. CYCLOPHOSPHAMIDE [Suspect]
     Route: 065
  6. LETROZOLE [Suspect]
     Route: 048

REACTIONS (1)
  - Breast cancer female [Not Recovered/Not Resolved]
